APPROVED DRUG PRODUCT: SODIUM BICARBONATE
Active Ingredient: SODIUM BICARBONATE
Strength: 10MEQ/10ML (1MEQ/ML)
Dosage Form/Route: SOLUTION;INTRAVENOUS
Application: A211091 | Product #003 | TE Code: AP
Applicant: EXELA PHARMA SCIENCES LLC
Approved: Jun 20, 2019 | RLD: No | RS: Yes | Type: RX